FAERS Safety Report 10641723 (Version 3)
Quarter: 2014Q4

REPORT INFORMATION
  Report Type: Spontaneous
  Country: AE (occurrence: AE)
  Receive Date: 20141209
  Receipt Date: 20141223
  Transmission Date: 20150529
  Serious: Yes (Hospitalization, Other)
  Sender: FDA-Public Use
  Company Number: AE-JNJFOC-20141202720

PATIENT
  Age: 59 Year
  Sex: Male

DRUGS (4)
  1. OLYSIO [Suspect]
     Active Substance: SIMEPREVIR
     Indication: HEPATITIS C
     Route: 048
     Dates: start: 20140923
  2. SOFOSBUVIR [Suspect]
     Active Substance: SOFOSBUVIR
     Indication: HEPATITIS C
     Route: 065
     Dates: start: 20140923
  3. OLYSIO [Suspect]
     Active Substance: SIMEPREVIR
     Indication: HEPATIC CIRRHOSIS
     Route: 048
     Dates: start: 20140923
  4. RIBAVIRIN. [Suspect]
     Active Substance: RIBAVIRIN
     Indication: HEPATITIS C
     Route: 065

REACTIONS (10)
  - Melaena [Unknown]
  - Haemoglobin decreased [Unknown]
  - Pyrexia [Unknown]
  - Haematemesis [Unknown]
  - Off label use [Unknown]
  - Hepatorenal syndrome [Unknown]
  - Pulmonary oedema [Recovered/Resolved]
  - Oliguria [Unknown]
  - Rash maculo-papular [Unknown]
  - Sepsis [Unknown]

NARRATIVE: CASE EVENT DATE: 201410
